FAERS Safety Report 4472526-6 (Version None)
Quarter: 2004Q4

REPORT INFORMATION
  Report Type: 
  Country: None (occurrence: None)
  Receive Date: 20041007
  Receipt Date: 20040824
  Transmission Date: 20050328
  Serious: Yes (Death)
  Sender: FDA-Public Use
  Company Number: 2004S1000213

PATIENT
  Age: 80 Year
  Sex: Male
  Weight: 61 kg

DRUGS (1)
  1. CUBICIN [Suspect]
     Indication: ENDOCARDITIS
     Dosage: 250 MG;Q48H;IV
     Route: 042
     Dates: start: 20040812, end: 20040822

REACTIONS (1)
  - DEATH [None]
